FAERS Safety Report 4287099-0 (Version None)
Quarter: 2004Q1

REPORT INFORMATION
  Report Type: 
  Country: None (occurrence: None)
  Receive Date: 20040204
  Receipt Date: 20040121
  Transmission Date: 20041129
  Serious: Yes (Hospitalization)
  Sender: FDA-Public Use
  Company Number: 200400018

PATIENT
  Age: 42 Year
  Sex: Female
  Weight: 65 kg

DRUGS (1)
  1. BOTOX [Suspect]
     Indication: DRUG USE FOR UNKNOWN INDICATION
     Dates: start: 20030701

REACTIONS (10)
  - AREFLEXIA [None]
  - ATONIC URINARY BLADDER [None]
  - CEREBROVASCULAR ACCIDENT [None]
  - DISORIENTATION [None]
  - FACIAL PARESIS [None]
  - HEMIPARESIS [None]
  - HYPERHIDROSIS [None]
  - HYPOAESTHESIA ORAL [None]
  - MEDICATION ERROR [None]
  - MUSCULAR WEAKNESS [None]
